FAERS Safety Report 6976601-3 (Version None)
Quarter: 2010Q3

REPORT INFORMATION
  Report Type: 
  Country: None (occurrence: None)
  Receive Date: 20100910
  Receipt Date: 20100830
  Transmission Date: 20110219
  Serious: Yes (Hospitalization, Other)
  Sender: FDA-Public Use
  Company Number: US-PFIZER INC-2010083003

PATIENT
  Sex: Male

DRUGS (3)
  1. CHANTIX [Suspect]
     Indication: SMOKING CESSATION THERAPY
     Dosage: STARTER AND CONTINUING PACK
     Route: 048
     Dates: start: 20080313, end: 20080413
  2. IBUPROFEN [Concomitant]
     Indication: PAIN
     Dosage: UNK
     Dates: start: 20071210, end: 20080403
  3. HAEMORRHOIDAL [Concomitant]
     Indication: HAEMORRHOIDS
     Dosage: UNK
     Dates: start: 20080313, end: 20080403

REACTIONS (6)
  - AGGRESSION [None]
  - DEPRESSION [None]
  - DRUG ABUSE [None]
  - INTENTIONAL OVERDOSE [None]
  - PHYSICAL ASSAULT [None]
  - SUICIDE ATTEMPT [None]
